FAERS Safety Report 7577534-4 (Version None)
Quarter: 2011Q2

REPORT INFORMATION
  Report Type: 
  Country: None (occurrence: None)
  Receive Date: 20110628
  Receipt Date: 20110615
  Transmission Date: 20111010
  Serious: Yes (Hospitalization)
  Sender: FDA-Public Use
  Company Number: US-AMGEN-USASP2011028702

PATIENT
  Age: 63 Year
  Sex: Female

DRUGS (1)
  1. ENBREL [Suspect]
     Indication: PSORIASIS
     Dosage: 25 MG, 2 TIMES/WK
     Dates: start: 20030201, end: 20110315

REACTIONS (7)
  - WEIGHT INCREASED [None]
  - TOOTHACHE [None]
  - JOINT INJURY [None]
  - DEPRESSED MOOD [None]
  - PSORIASIS [None]
  - ENAMEL ANOMALY [None]
  - FALL [None]
